FAERS Safety Report 24544143 (Version 1)
Quarter: 2024Q4

REPORT INFORMATION
  Report Type: Other
  Country: JP (occurrence: JP)
  Receive Date: 20241024
  Receipt Date: 20241024
  Transmission Date: 20250114
  Serious: Yes (Death, Hospitalization)
  Sender: ANI
  Company Number: JP-ANIPHARMA-012629

PATIENT
  Age: 60 Year
  Sex: Male

DRUGS (1)
  1. TEMOZOLOMIDE [Suspect]
     Active Substance: TEMOZOLOMIDE
     Indication: Brain stem glioma

REACTIONS (1)
  - Drug ineffective [Fatal]
